APPROVED DRUG PRODUCT: RANITIDINE HYDROCHLORIDE
Active Ingredient: RANITIDINE HYDROCHLORIDE
Strength: EQ 75MG BASE
Dosage Form/Route: TABLET;ORAL
Application: A076760 | Product #001
Applicant: WOCKHARDT LTD
Approved: Feb 24, 2006 | RLD: No | RS: No | Type: DISCN